FAERS Safety Report 11364158 (Version 5)
Quarter: 2015Q4

REPORT INFORMATION
  Report Type: Report from Study
  Country: PL (occurrence: PL)
  Receive Date: 20150811
  Receipt Date: 20151123
  Transmission Date: 20160304
  Serious: Yes (Hospitalization)
  Sender: FDA-Public Use
  Company Number: PL-PFIZER INC-2015255894

PATIENT
  Age: 16 Year
  Sex: Male
  Weight: 53 kg

DRUGS (4)
  1. NEURONTIN [Suspect]
     Active Substance: GABAPENTIN
     Indication: EPILEPSY
     Dosage: 1800 MG, 2X/DAY; BID
     Route: 048
     Dates: start: 20141222
  2. PREGABALIN. [Suspect]
     Active Substance: PREGABALIN
     Indication: EPILEPSY
     Dosage: 1 DF, 2X/DAY; BID
     Route: 048
     Dates: start: 20131219, end: 20141222
  3. DEPAKINE CHRONO [Concomitant]
     Active Substance: VALPROATE SODIUM
     Indication: EPILEPSY
     Dosage: 900 MG, 2X/DAY, BID
     Route: 048
     Dates: start: 20041230
  4. TRILEPTAL [Concomitant]
     Active Substance: OXCARBAZEPINE
     Indication: EPILEPSY
     Dosage: 600 MG, 2X/DAY; BID
     Route: 048
     Dates: start: 20130218

REACTIONS (1)
  - Salivary gland neoplasm [Recovered/Resolved with Sequelae]

NARRATIVE: CASE EVENT DATE: 201505
